FAERS Safety Report 9853071 (Version 3)
Quarter: 2014Q1

REPORT INFORMATION
  Report Type: Spontaneous
  Country: NL (occurrence: NL)
  Receive Date: 20140129
  Receipt Date: 20140305
  Transmission Date: 20141002
  Serious: Yes (Other)
  Sender: FDA-Public Use
  Company Number: NL-BAXTER-2014BAX002879

PATIENT
  Age: 59 Year
  Sex: Female
  Weight: 84 kg

DRUGS (3)
  1. ADVATE 1000 IE [Suspect]
     Indication: FACTOR VIII DEFICIENCY
     Route: 042
     Dates: start: 20131204, end: 20131209
  2. ADVATE 1000 IE [Suspect]
     Indication: GENE MUTATION
  3. ADVATE 1000 IE [Suspect]
     Indication: SPINAL OPERATION

REACTIONS (4)
  - Urosepsis [Recovered/Resolved]
  - Activated partial thromboplastin time prolonged [Unknown]
  - Factor VIII inhibition [Unknown]
  - Coagulation factor VIII level decreased [Unknown]
